FAERS Safety Report 8889906 (Version 2)
Quarter: 2014Q2

REPORT INFORMATION
  Report Type: Spontaneous
  Country: US (occurrence: US)
  Receive Date: 20121107
  Receipt Date: 20131024
  Transmission Date: 20141212
  Serious: No
  Sender: FDA-Public Use
  Company Number: US-PFIZER INC-2012271456

PATIENT
  Age: 62 Year
  Sex: Female
  Weight: 78.46 kg

DRUGS (2)
  1. PREMPRO [Suspect]
     Indication: MENOPAUSAL SYMPTOMS
     Dosage: UNK, 1X/DAY
     Route: 048
     Dates: start: 1999, end: 2009
  2. EFFEXOR XR [Suspect]
     Indication: DEPRESSION
     Dosage: 75 MG, 1X/DAY
     Route: 048
     Dates: end: 2009

REACTIONS (3)
  - Anger [Not Recovered/Not Resolved]
  - Hormone level abnormal [Unknown]
  - Hot flush [Not Recovered/Not Resolved]
